FAERS Safety Report 16148355 (Version 2)
Quarter: 2019Q2

REPORT INFORMATION
  Report Type: Report from Study
  Country: ZA (occurrence: ZA)
  Receive Date: 20190402
  Receipt Date: 20190430
  Transmission Date: 20190711
  Serious: Yes (Other)
  Sender: FDA-Public Use
  Company Number: ZA-SA-2019SA014384

PATIENT
  Age: 53 Year
  Sex: Male

DRUGS (7)
  1. COLCHICINE. [Concomitant]
     Active Substance: COLCHICINE
     Dosage: 0.5 MG, QD BEFORE BREAKFAST
     Dates: start: 20170101
  2. OPTISULIN (INSULIN GLARGINE) [Suspect]
     Active Substance: INSULIN GLARGINE
     Dosage: UNK
  3. ELTROXIN [Concomitant]
     Active Substance: LEVOTHYROXINE
     Dosage: BB-0.05 MG , BB-0.1 MG
     Route: 065
     Dates: start: 20130101
  4. GLUCOPHAGE [Concomitant]
     Active Substance: METFORMIN HYDROCHLORIDE
     Dosage: 1000 MG, BID AFTER BREAKFAST AND AFTER SUPPER
     Route: 065
     Dates: start: 20040101
  5. INSULIN GLARGINE [Suspect]
     Active Substance: INSULIN GLARGINE
     Dosage: 32 U, BID
     Route: 065
     Dates: start: 20181122
  6. ZARTAN [Concomitant]
     Active Substance: LOSARTAN POTASSIUM
     Dosage: 100 MG, QD (BB)
     Route: 065
     Dates: start: 19950101
  7. INSULIN GLULISINE [Suspect]
     Active Substance: INSULIN GLULISINE
     Dosage: 12 IU, TID (BEFORE BREAKFAST, BEFORE LUNCH, BEFORE SUPPER)
     Route: 065
     Dates: start: 20190116

REACTIONS (7)
  - Cellulitis [Recovered/Resolved]
  - Bronchitis [Recovered/Resolved]
  - Blood glucose decreased [Recovered/Resolved]
  - Treatment noncompliance [Unknown]
  - Glycosylated haemoglobin increased [Unknown]
  - Inappropriate schedule of product administration [Unknown]
  - Intentional product use issue [Unknown]

NARRATIVE: CASE EVENT DATE: 20190311
